FAERS Safety Report 4466364-8 (Version None)
Quarter: 2004Q3

REPORT INFORMATION
  Report Type: 
  Country: None (occurrence: None)
  Receive Date: 20040930
  Receipt Date: 20040915
  Transmission Date: 20050211
  Serious: Yes (Hospitalization)
  Sender: FDA-Public Use
  Company Number: 2004-BP-07311BP

PATIENT
  Age: 73 Year
  Sex: Male

DRUGS (2)
  1. COMBIVENT [Suspect]
     Indication: CHRONIC OBSTRUCTIVE AIRWAYS DISEASE
     Dosage: 5 PUF (SEE TEXT, 28 MCG/103 MCG 1 PUFF 5X/DAY), IH
     Route: 055
     Dates: start: 20030101
  2. VITAMIN C (ASCORBIC ACID) [Concomitant]

REACTIONS (3)
  - ACUTE RESPIRATORY FAILURE [None]
  - CHEST DISCOMFORT [None]
  - PHARMACEUTICAL PRODUCT COMPLAINT [None]
